FAERS Safety Report 7750439-1 (Version None)
Quarter: 2011Q3

REPORT INFORMATION
  Report Type: 
  Country: None (occurrence: None)
  Receive Date: 20110914
  Receipt Date: 20110907
  Transmission Date: 20111222
  Serious: Yes (Hospitalization)
  Sender: FDA-Public Use
  Company Number: GB-ABBOTT-11P-167-0852352-00

PATIENT
  Age: 61 Year
  Sex: Male

DRUGS (5)
  1. DEPAKOTE [Suspect]
     Route: 048
     Dates: start: 20101201
  2. SEROQUEL [Concomitant]
     Indication: PRODUCT USED FOR UNKNOWN INDICATION
     Dates: end: 20101022
  3. TEMAZEPAM [Concomitant]
     Indication: ANXIETY
     Dates: end: 20101022
  4. DEPAKOTE [Suspect]
     Indication: PRODUCT USED FOR UNKNOWN INDICATION
     Route: 048
     Dates: end: 20101022
  5. LITHIUM CARBONATE [Suspect]
     Indication: PRODUCT USED FOR UNKNOWN INDICATION
     Route: 048
     Dates: end: 20101022

REACTIONS (1)
  - MUSCLE DISORDER [None]
